FAERS Safety Report 20534911 (Version 1)
Quarter: 2022Q1

REPORT INFORMATION
  Report Type: Other
  Country: US (occurrence: None)
  Receive Date: 20220302
  Receipt Date: 20220302
  Transmission Date: 20220423
  Serious: Yes (Hospitalization, Other)
  Sender: FDA-Public Use
  Company Number: US-ROCHE-3023834

PATIENT
  Age: 57 Year
  Sex: Female
  Weight: 66.68 kg

DRUGS (20)
  1. OCREVUS [Suspect]
     Active Substance: OCRELIZUMAB
     Indication: Relapsing-remitting multiple sclerosis
     Dosage: 2 VIALS
     Route: 065
     Dates: start: 202101
  2. RITUXAN [Suspect]
     Active Substance: RITUXIMAB
     Indication: Multiple sclerosis
     Route: 065
     Dates: start: 201803
  3. VALIUM [Suspect]
     Active Substance: DIAZEPAM
     Indication: Product used for unknown indication
     Dosage: 1 TABLET DURING DAYTIME AS  NEEDED AND 2 TABLET AT NIGHT
     Route: 048
  4. ELIQUIS [Concomitant]
     Active Substance: APIXABAN
  5. HYDRALAZINE HCL [Concomitant]
     Active Substance: HYDRALAZINE HYDROCHLORIDE
  6. CAPTOPRIL [Concomitant]
     Active Substance: CAPTOPRIL
  7. ZOFRAN [Concomitant]
     Active Substance: ONDANSETRON HYDROCHLORIDE
  8. LINZESS [Concomitant]
     Active Substance: LINACLOTIDE
  9. VIBERZI [Concomitant]
     Active Substance: ELUXADOLINE
  10. BELBUCA [Concomitant]
     Active Substance: BUPRENORPHINE HYDROCHLORIDE
  11. VICODIN HP [Concomitant]
     Active Substance: ACETAMINOPHEN\HYDROCODONE BITARTRATE
  12. ALBUTEROL SULFATE [Concomitant]
     Active Substance: ALBUTEROL SULFATE
  13. LIBRIUM [Concomitant]
     Active Substance: CHLORDIAZEPOXIDE HYDROCHLORIDE
  14. PRAVASTATIN SODIUM [Concomitant]
     Active Substance: PRAVASTATIN SODIUM
  15. TIZANIDINE HYDROCHLORIDE [Concomitant]
     Active Substance: TIZANIDINE HYDROCHLORIDE
  16. GABAPENTIN [Concomitant]
     Active Substance: GABAPENTIN
  17. BACLOFEN [Concomitant]
     Active Substance: BACLOFEN
  18. MIDODRINE HYDROCHLORIDE [Concomitant]
     Active Substance: MIDODRINE HYDROCHLORIDE
  19. TRAZODONE HCL [Concomitant]
     Active Substance: TRAZODONE HYDROCHLORIDE
  20. PREGABALIN [Concomitant]
     Active Substance: PREGABALIN

REACTIONS (24)
  - Syncope [Unknown]
  - Pneumonia [Unknown]
  - Muscular weakness [Unknown]
  - Hemiparesis [Unknown]
  - Hypoaesthesia [Unknown]
  - Pain [Unknown]
  - Muscle spasms [Unknown]
  - Neuralgia [Unknown]
  - Pulmonary embolism [Unknown]
  - Dyspnoea [Unknown]
  - Limb injury [Unknown]
  - Fall [Unknown]
  - Orthostatic intolerance [Unknown]
  - Head injury [Unknown]
  - Headache [Unknown]
  - Neck pain [Unknown]
  - Pain in extremity [Unknown]
  - Off label use [Unknown]
  - Chest pain [Unknown]
  - Urinary incontinence [Unknown]
  - Anal incontinence [Unknown]
  - Tinnitus [Unknown]
  - Memory impairment [Not Recovered/Not Resolved]
  - Lhermitte^s sign [Unknown]

NARRATIVE: CASE EVENT DATE: 20180601
